FAERS Safety Report 11031232 (Version 1)
Quarter: 2015Q2

REPORT INFORMATION
  Report Type: Spontaneous
  Country: US (occurrence: US)
  Receive Date: 20150415
  Receipt Date: 20150415
  Transmission Date: 20150821
  Serious: No
  Sender: FDA-Public Use
  Company Number: US-ASTRAZENECA-2014SE57922

PATIENT
  Age: 66 Year
  Sex: Female

DRUGS (2)
  1. PRILOSEC OTC [Suspect]
     Active Substance: OMEPRAZOLE MAGNESIUM
     Dosage: 1/DAY BUT DID NOT TAKE IT EVERY DAY- MAYBE JUST 3-4 TABLETS
     Route: 048
     Dates: start: 20140716, end: 20140801
  2. CARDIOVASCULAR SYSTEM DRUGS [Concomitant]
     Active Substance: UNSPECIFIED INGREDIENT
     Dosage: UNKNOWN

REACTIONS (2)
  - Headache [Recovered/Resolved]
  - Inappropriate schedule of drug administration [Unknown]
